FAERS Safety Report 22761773 (Version 4)
Quarter: 2023Q4

REPORT INFORMATION
  Report Type: Spontaneous
  Country: BR (occurrence: BR)
  Receive Date: 20230728
  Receipt Date: 20231010
  Transmission Date: 20240109
  Serious: Yes (Other)
  Sender: FDA-Public Use
  Company Number: BR-ALCON LABORATORIES-ALC2023BR003163

PATIENT
  Age: 59 Year
  Sex: Female
  Weight: 67 kg

DRUGS (6)
  1. MYDRIACYL [Suspect]
     Active Substance: TROPICAMIDE
     Indication: Pupil dilation procedure
     Dosage: 6 DROPS
     Route: 047
     Dates: start: 20230620
  2. MYDRIACYL [Suspect]
     Active Substance: TROPICAMIDE
     Indication: Preoperative care
  3. PHENYLEPHRINE [Suspect]
     Active Substance: PHENYLEPHRINE HYDROCHLORIDE
     Indication: Pupil dilation procedure
     Dosage: UNK
     Route: 047
     Dates: start: 20230620
  4. PHENYLEPHRINE [Suspect]
     Active Substance: PHENYLEPHRINE HYDROCHLORIDE
     Indication: Preoperative care
  5. CHLORHEXIDINE [Concomitant]
     Active Substance: CHLORHEXIDINE\CHLORHEXIDINE GLUCONATE
     Indication: Preoperative care
     Dosage: UNK
     Route: 065
  6. SODIUM CHLORIDE [Concomitant]
     Active Substance: SODIUM CHLORIDE
     Indication: Venipuncture
     Dosage: UNK
     Route: 065

REACTIONS (6)
  - Hypertensive crisis [Recovered/Resolved]
  - Asthmatic crisis [Recovered/Resolved]
  - Neck pain [Recovered/Resolved]
  - Vomiting [Recovered/Resolved]
  - Headache [Recovered/Resolved]
  - Blood pressure decreased [Recovered/Resolved]

NARRATIVE: CASE EVENT DATE: 20230620
